FAERS Safety Report 6575334-5 (Version None)
Quarter: 2010Q1

REPORT INFORMATION
  Report Type: 
  Country: None (occurrence: None)
  Receive Date: 20100209
  Receipt Date: 20100129
  Transmission Date: 20100710
  Serious: Yes (Hospitalization, Other)
  Sender: FDA-Public Use
  Company Number: JP-JNJFOC-20100201785

PATIENT
  Sex: Female
  Weight: 39 kg

DRUGS (7)
  1. REMICADE [Suspect]
     Indication: RHEUMATOID ARTHRITIS
     Dosage: NOT FINISHED DUE TO HEADACHE
     Route: 042
  2. REMICADE [Suspect]
     Dosage: INFUSION 20-21 ON UNSPECIFIED DATES
     Route: 042
  3. REMICADE [Suspect]
     Dosage: 22ND DOSE RECEIVED
     Route: 042
  4. REMICADE [Suspect]
     Route: 042
  5. REMICADE [Suspect]
     Dosage: INFUSION 2-18  ON UNSPECIFIED DATES
     Route: 042
  6. RHEUMATREX [Suspect]
     Indication: RHEUMATOID ARTHRITIS
     Route: 048
  7. RHEUMATREX [Suspect]
     Route: 048

REACTIONS (7)
  - COUGH [None]
  - FLUSHING [None]
  - HEADACHE [None]
  - INFUSION RELATED REACTION [None]
  - LUPUS-LIKE SYNDROME [None]
  - OROPHARYNGEAL DISCOMFORT [None]
  - SWELLING [None]
